FAERS Safety Report 5104714-X (Version None)
Quarter: 2006Q3

REPORT INFORMATION
  Report Type: 
  Country: None (occurrence: None)
  Receive Date: 20060731
  Receipt Date: 20050727
  Transmission Date: 20061208
  Serious: Yes (Other)
  Sender: FDA-Public Use
  Company Number: US-JNJFOC-20050600066

PATIENT
  Age: 33 Year
  Sex: Female
  Weight: 77.1115 kg

DRUGS (7)
  1. RISPERDAL [Suspect]
     Indication: BIPOLAR I DISORDER
     Dosage: , IN 1 DAY, ORAL
     Route: 048
     Dates: start: 20010101
  2. PROZAC [Concomitant]
  3. PRAZENE () PRAZEPAM [Concomitant]
  4. LITHIUM () LITHIUM [Concomitant]
  5. RESTORIL [Concomitant]
  6. GEODON [Concomitant]
  7. DEPAKOTE [Concomitant]

REACTIONS (1)
  - TARDIVE DYSKINESIA [None]
